FAERS Safety Report 21157192 (Version 2)
Quarter: 2022Q3

REPORT INFORMATION
  Report Type: Spontaneous
  Country: ES (occurrence: ES)
  Receive Date: 20220801
  Receipt Date: 20220801
  Transmission Date: 20221026
  Serious: Yes (Death, Hospitalization, Other)
  Sender: FDA-Public Use
  Company Number: ES-SA-2022SA306606

PATIENT
  Age: 49 Year
  Sex: Male

DRUGS (10)
  1. DOCETAXEL [Suspect]
     Active Substance: DOCETAXEL
     Indication: Neoplasm
     Dosage: 35 MG, Q3W
     Route: 042
     Dates: start: 20220427, end: 20220525
  2. ABBV 637 [Concomitant]
     Indication: Neoplasm
     Dosage: 12 MG/KG, Q4W
     Route: 042
     Dates: start: 20220427, end: 20220525
  3. ACETYLCYSTEINE [Concomitant]
     Active Substance: ACETYLCYSTEINE
     Indication: Prophylaxis
     Dosage: 600 MG, PRN
     Route: 048
     Dates: start: 202204
  4. BEMIPARIN [Concomitant]
     Active Substance: BEMIPARIN
     Indication: Portal vein thrombosis
     Dosage: 7500 IU, QD
     Route: 058
     Dates: start: 20220426
  5. CODEINE SULFATE [Concomitant]
     Active Substance: CODEINE SULFATE
     Indication: Prophylaxis
     Dosage: UNK
     Route: 048
     Dates: start: 202204
  6. MEMANTINE [Concomitant]
     Active Substance: MEMANTINE
     Indication: Prophylaxis
     Dosage: 20 MG, 2 IN 1 D
     Route: 048
     Dates: start: 202201
  7. ACETAMINOPHEN [Concomitant]
     Active Substance: ACETAMINOPHEN
     Indication: Neoplasm prophylaxis
     Dosage: 650 MG
     Route: 048
     Dates: start: 2019
  8. DEXAMETHASONE [Concomitant]
     Active Substance: DEXAMETHASONE
     Indication: Premedication
     Dosage: 16 MG, QW
     Route: 048
     Dates: start: 20220427
  9. METHYLPREDNISOLONE [Concomitant]
     Active Substance: METHYLPREDNISOLONE
     Indication: Aspartate aminotransferase increased
     Dosage: 32 MG, QD
     Route: 048
     Dates: start: 20220622
  10. METHYLPREDNISOLONE [Concomitant]
     Active Substance: METHYLPREDNISOLONE
     Indication: Alanine aminotransferase increased

REACTIONS (2)
  - Death [Fatal]
  - Pneumonia [Unknown]

NARRATIVE: CASE EVENT DATE: 20220627
